FAERS Safety Report 10775046 (Version 4)
Quarter: 2015Q1

REPORT INFORMATION
  Report Type: Report from Study
  Country: JP (occurrence: JP)
  Receive Date: 20150209
  Receipt Date: 20150330
  Transmission Date: 20150721
  Serious: Yes (Death)
  Sender: FDA-Public Use
  Company Number: JP-JNJFOC-20150201748

PATIENT
  Age: 54 Year
  Sex: Male

DRUGS (6)
  1. XEPLION [Suspect]
     Active Substance: PALIPERIDONE PALMITATE
     Indication: SCHIZOPHRENIA, CATATONIC TYPE
     Route: 030
     Dates: start: 20141226, end: 20141226
  2. XEPLION [Suspect]
     Active Substance: PALIPERIDONE PALMITATE
     Indication: SCHIZOPHRENIA, CATATONIC TYPE
     Route: 030
     Dates: start: 20141126, end: 20141126
  3. XEPLION [Suspect]
     Active Substance: PALIPERIDONE PALMITATE
     Indication: SCHIZOPHRENIA, CATATONIC TYPE
     Route: 030
     Dates: start: 20150123, end: 20150123
  4. XEPLION [Suspect]
     Active Substance: PALIPERIDONE PALMITATE
     Indication: SCHIZOPHRENIA, CATATONIC TYPE
     Route: 030
     Dates: start: 20141203, end: 20141203
  5. ROHYPNOL [Concomitant]
     Active Substance: FLUNITRAZEPAM
     Indication: SCHIZOPHRENIA, CATATONIC TYPE
     Route: 048
     Dates: end: 20150126
  6. WYPAX [Concomitant]
     Active Substance: LORAZEPAM
     Indication: SCHIZOPHRENIA, CATATONIC TYPE
     Route: 048
     Dates: end: 20150126

REACTIONS (2)
  - Acute myocardial infarction [Fatal]
  - Asphyxia [Fatal]

NARRATIVE: CASE EVENT DATE: 20150126
